FAERS Safety Report 20906569 (Version 1)
Quarter: 2022Q2

REPORT INFORMATION
  Report Type: Spontaneous
  Country: US (occurrence: None)
  Receive Date: 20220602
  Receipt Date: 20220602
  Transmission Date: 20220721
  Serious: Yes (Other)
  Sender: FDA-Public Use
  Company Number: None

PATIENT
  Age: 40 Year
  Sex: Female
  Weight: 96.75 kg

DRUGS (2)
  1. HALOPERIDOL [Suspect]
     Active Substance: HALOPERIDOL
     Indication: Anxiety
     Dosage: OTHER QUANTITY : 1 TABLET(S);?FREQUENCY : AT BEDTIME;?
     Route: 048
     Dates: start: 20220517, end: 20220602
  2. HALOPERIDOL [Suspect]
     Active Substance: HALOPERIDOL
     Indication: Nightmare

REACTIONS (7)
  - Myalgia [None]
  - Musculoskeletal stiffness [None]
  - Nausea [None]
  - Vomiting [None]
  - Influenza like illness [None]
  - Heart rate abnormal [None]
  - Loss of personal independence in daily activities [None]

NARRATIVE: CASE EVENT DATE: 20220601
